FAERS Safety Report 5265986-4 (Version None)
Quarter: 2007Q1

REPORT INFORMATION
  Report Type: 
  Country: None (occurrence: None)
  Receive Date: 20070312
  Receipt Date: 20070312
  Transmission Date: 20070707
  Serious: Yes (Hospitalization)
  Sender: FDA-Public Use
  Company Number: None

PATIENT
  Age: 62 Year
  Sex: Male
  Weight: 84.369 kg

DRUGS (15)
  1. IMATINIB 100MG TAB [Suspect]
     Indication: PROSTATE CANCER METASTATIC
     Dosage: 200 MG PO DAILY
     Route: 048
     Dates: start: 20070206
  2. THALIDOMIDE 100 MG TAB [Suspect]
     Indication: PROSTATE CANCER METASTATIC
     Dosage: 100 MG PO DAILY
     Route: 048
     Dates: start: 20070206
  3. ALBUTEROL [Concomitant]
  4. ASPIRIN [Concomitant]
  5. CARISOPRODOL [Concomitant]
  6. DIAZEPAM [Concomitant]
  7. GUAIFENESIN [Concomitant]
  8. HYDROCODONE [Concomitant]
  9. LITHIUM CARBONATE [Concomitant]
  10. PREDNISONE [Concomitant]
  11. MOXIFLOXACIN HCL [Concomitant]
  12. PROCHLOROPERAZINE [Concomitant]
  13. RISPERIDONE [Concomitant]
  14. SENNOSIDES [Concomitant]
  15. WARFARIN SODIUM [Concomitant]

REACTIONS (4)
  - DECREASED APPETITE [None]
  - DYSARTHRIA [None]
  - HEADACHE [None]
  - MUSCULAR WEAKNESS [None]
